FAERS Safety Report 5218838-X (Version None)
Quarter: 2007Q1

REPORT INFORMATION
  Report Type: 
  Country: None (occurrence: None)
  Receive Date: 20070125
  Receipt Date: 20070112
  Transmission Date: 20070707
  Serious: Yes (Other)
  Sender: FDA-Public Use
  Company Number: FI-JNJFOC-20070104832

PATIENT
  Age: 6 Year
  Sex: Female

DRUGS (4)
  1. INFLIXIMAB [Suspect]
  2. INFLIXIMAB [Suspect]
     Indication: CROHN'S DISEASE
     Dosage: SIX DOSES ON UNSPECIFIED DATES
  3. MESALAZINE [Concomitant]
     Indication: CROHN'S DISEASE
  4. BUDESONIDE [Concomitant]
     Indication: CROHN'S DISEASE

REACTIONS (1)
  - ANAPHYLACTIC REACTION [None]
